FAERS Safety Report 7530400-2 (Version None)
Quarter: 2011Q2

REPORT INFORMATION
  Report Type: 
  Country: None (occurrence: None)
  Receive Date: 20110607
  Receipt Date: 20110525
  Transmission Date: 20111010
  Serious: Yes (Death)
  Sender: FDA-Public Use
  Company Number: SK-ELI_LILLY_AND_COMPANY-SK201105008465

PATIENT
  Sex: Male

DRUGS (6)
  1. OLANZAPINE [Suspect]
     Indication: SCHIZOPHRENIA, PARANOID TYPE
     Dosage: 300 MG, EVERY 2WEEKS
     Route: 030
     Dates: start: 20110520
  2. ZOLPIDEM [Concomitant]
     Indication: INSOMNIA
  3. BIPERIDEN HYDROCHLORIDE TAB [Concomitant]
  4. ZYPREXA [Suspect]
     Indication: SCHIZOPHRENIA, PARANOID TYPE
     Dosage: 10 MG, UNK
     Route: 048
     Dates: start: 20110510
  5. HALOPERIDOL [Concomitant]
     Indication: SCHIZOPHRENIA, PARANOID TYPE
  6. ZYPREXA [Suspect]
     Dosage: 20 MG, QD
     Dates: end: 20110519

REACTIONS (1)
  - COMPLETED SUICIDE [None]
